FAERS Safety Report 10389831 (Version 1)
Quarter: 2014Q3

REPORT INFORMATION
  Report Type: Spontaneous
  Country: FR (occurrence: FR)
  Receive Date: 20140818
  Receipt Date: 20140818
  Transmission Date: 20150326
  Serious: Yes (Hospitalization)
  Sender: FDA-Public Use
  Company Number: FR-JNJFOC-20140812468

PATIENT
  Age: 95 Year
  Sex: Female
  Weight: 45 kg

DRUGS (5)
  1. IXPRIM [Suspect]
     Active Substance: ACETAMINOPHEN\TRAMADOL HYDROCHLORIDE
     Indication: POLYNEUROPATHY
     Route: 048
     Dates: start: 2013
  2. DEROXAT [Suspect]
     Active Substance: PAROXETINE HYDROCHLORIDE
     Indication: PRODUCT USED FOR UNKNOWN INDICATION
     Route: 048
     Dates: start: 2013
  3. MICARDISPLUS [Suspect]
     Active Substance: HYDROCHLOROTHIAZIDE\TELMISARTAN
     Indication: HYPERTENSION
     Route: 048
     Dates: start: 2013, end: 20140527
  4. IMOVANE [Concomitant]
     Active Substance: ZOPICLONE
     Indication: PRODUCT USED FOR UNKNOWN INDICATION
     Route: 048
     Dates: start: 2013
  5. LYRICA [Concomitant]
     Active Substance: PREGABALIN
     Indication: SENSORY DISTURBANCE
     Route: 048

REACTIONS (5)
  - Diarrhoea [Recovered/Resolved]
  - Arrhythmia [Recovering/Resolving]
  - Hypokalaemia [Recovered/Resolved]
  - Dehydration [Recovering/Resolving]
  - Renal failure [Recovered/Resolved]

NARRATIVE: CASE EVENT DATE: 201403
